FAERS Safety Report 4983062-2 (Version None)
Quarter: 2006Q2

REPORT INFORMATION
  Report Type: 
  Country: None (occurrence: None)
  Receive Date: 20060426
  Receipt Date: 20060414
  Transmission Date: 20061013
  Serious: Yes (Other)
  Sender: FDA-Public Use
  Company Number: JP-BRISTOL-MYERS SQUIBB COMPANY-13346796

PATIENT
  Sex: Female
  Weight: 2 kg

DRUGS (3)
  1. VIDEX EC [Suspect]
     Route: 064
     Dates: start: 20010910, end: 20020325
  2. VIRACEPT [Suspect]
     Route: 064
     Dates: start: 20010910, end: 20020325
  3. RETROVIR [Suspect]
     Indication: HIV INFECTION
     Route: 064
     Dates: start: 20011031, end: 20020325

REACTIONS (3)
  - ANAEMIA [None]
  - NEONATAL ASPIRATION [None]
  - STAPHYLOCOCCAL INFECTION [None]
